FAERS Safety Report 5533453-6 (Version None)
Quarter: 2007Q4

REPORT INFORMATION
  Report Type: 
  Country: None (occurrence: None)
  Receive Date: 20071128
  Receipt Date: 20071114
  Transmission Date: 20080405
  Serious: Yes (Death, Other)
  Sender: FDA-Public Use
  Company Number: 164298USA

PATIENT
  Age: 33 Year
  Sex: Female

DRUGS (5)
  1. CYTARABINE [Suspect]
     Indication: ACUTE MYELOID LEUKAEMIA
  2. CYCLOPHOSPHAMIDE [Suspect]
     Indication: ACUTE MYELOID LEUKAEMIA
  3. METHOTREXATE [Suspect]
     Indication: PROPHYLAXIS AGAINST GRAFT VERSUS HOST DISEASE
  4. AZATHIOPRINE [Suspect]
     Indication: GRAFT VERSUS HOST DISEASE
  5. PREDNISONE [Suspect]
     Indication: GRAFT VERSUS HOST DISEASE

REACTIONS (3)
  - ACUTE GRAFT VERSUS HOST DISEASE IN SKIN [None]
  - LIP AND/OR ORAL CAVITY CANCER [None]
  - REFUSAL OF TREATMENT BY PATIENT [None]
